FAERS Safety Report 7670178-5 (Version None)
Quarter: 2011Q3

REPORT INFORMATION
  Report Type: 
  Country: None (occurrence: None)
  Receive Date: 20110808
  Receipt Date: 20110802
  Transmission Date: 20111222
  Serious: Yes (Hospitalization, Other)
  Sender: FDA-Public Use
  Company Number: US-GENENTECH-322407

PATIENT
  Sex: Male
  Weight: 114 kg

DRUGS (2)
  1. ALTEPLASE [Suspect]
     Indication: CEREBROVASCULAR ACCIDENT
     Dosage: 90 MG, X1
     Route: 042
     Dates: start: 20110607, end: 20110607
  2. LISINOPRIL [Concomitant]
     Indication: PRODUCT USED FOR UNKNOWN INDICATION
     Dosage: 40 MG, QD
     Route: 048
     Dates: start: 20090101

REACTIONS (4)
  - TONGUE BLISTERING [None]
  - DYSPNOEA [None]
  - SWOLLEN TONGUE [None]
  - DYSPHAGIA [None]
